FAERS Safety Report 10903887 (Version 1)
Quarter: 2015Q1

REPORT INFORMATION
  Report Type: Spontaneous
  Country: US (occurrence: None)
  Receive Date: 20150306
  Receipt Date: 20150306
  Transmission Date: 20150721
  Serious: Yes (Other)
  Sender: FDA-Public Use
  Company Number: SIM_00612_2015

PATIENT
  Sex: Female

DRUGS (1)
  1. EAR RELIEF (HOMEOPATHIC) [Suspect]
     Active Substance: HOMEOPATHICS
     Indication: PRODUCT USED FOR UNKNOWN INDICATION
     Dosage: (4 DROPS IN RIGHT EAR 2-3 TIMES; 4 DROPS IN LEFT EAR AURICULAR (OTIC))
     Dates: start: 20150203, end: 20150204

REACTIONS (2)
  - Ear discomfort [None]
  - Exposure during pregnancy [None]

NARRATIVE: CASE EVENT DATE: 20150204
